FAERS Safety Report 25830265 (Version 2)
Quarter: 2025Q3

REPORT INFORMATION
  Report Type: Spontaneous
  Country: US (occurrence: US)
  Receive Date: 20250922
  Receipt Date: 20250926
  Transmission Date: 20251020
  Serious: Yes (Hospitalization)
  Sender: DERMARITE INDUSTRIES
  Company Number: US-DERMARITE INDUSTRIES, LLC.-2025-DER-US000013

PATIENT

DRUGS (1)
  1. LANTISEPTIC BY DERMARITE ORIGINAL SKIN PROTECTANT [Suspect]
     Active Substance: LANOLIN
     Indication: Decubitus ulcer
     Route: 065
     Dates: start: 201902, end: 202509

REACTIONS (1)
  - Wound infection [Unknown]
